FAERS Safety Report 8464605-3 (Version None)
Quarter: 2012Q2

REPORT INFORMATION
  Report Type: 
  Country: None (occurrence: None)
  Receive Date: 20120620
  Receipt Date: 20120620
  Transmission Date: 20120825
  Serious: Yes (Hospitalization)
  Sender: FDA-Public Use
  Company Number: None

PATIENT
  Age: 85 Year
  Sex: Male
  Weight: 103.7 kg

DRUGS (2)
  1. SPIRONOLACTONE [Suspect]
     Indication: CARDIAC FAILURE CONGESTIVE
     Dosage: 25 MG BID PO
     Route: 048
     Dates: start: 20120319, end: 20120328
  2. FUROSEMIDE [Suspect]
     Indication: CARDIAC FAILURE CONGESTIVE
     Dosage: 40 MG BID PO
     Route: 048
     Dates: start: 20100122

REACTIONS (6)
  - HYPOTENSION [None]
  - SPUTUM DISCOLOURED [None]
  - CARDIAC FAILURE CONGESTIVE [None]
  - DIZZINESS [None]
  - CONDITION AGGRAVATED [None]
  - PRODUCTIVE COUGH [None]
